FAERS Safety Report 9068299 (Version 2)
Quarter: 2013Q2

REPORT INFORMATION
  Report Type: Spontaneous
  Country: US (occurrence: US)
  Receive Date: 20130206
  Receipt Date: 20130603
  Transmission Date: 20140414
  Serious: No
  Sender: FDA-Public Use
  Company Number: US-009507513-1302USA000131

PATIENT
  Sex: Male
  Weight: 96.6 kg

DRUGS (2)
  1. MIRALAX [Suspect]
     Indication: CONSTIPATION
     Dosage: 17 G, QOD
     Route: 048
     Dates: start: 2011
  2. CLOZARIL [Concomitant]
     Indication: MENTAL DISORDER
     Dosage: UNK, UNKNOWN
     Route: 048

REACTIONS (1)
  - Lethargy [Not Recovered/Not Resolved]
